FAERS Safety Report 9554197 (Version 1)
Quarter: 2013Q3

REPORT INFORMATION
  Report Type: Spontaneous
  Country: US (occurrence: None)
  Receive Date: 20130802
  Receipt Date: 20130802
  Transmission Date: 20140515
  Serious: Yes (Other)
  Sender: FDA-Public Use
  Company Number: 1305USA001258

PATIENT
  Age: 47 Year
  Sex: Female
  Weight: 48.5 kg

DRUGS (1)
  1. INTRONA [Suspect]
     Indication: HEPATITIS C
     Dates: start: 19940506, end: 19940701

REACTIONS (5)
  - Hyperthyroidism [None]
  - Weight decreased [None]
  - Rheumatoid arthritis [None]
  - Hypertension [None]
  - Osteoporosis [None]
